FAERS Safety Report 6627822-0 (Version None)
Quarter: 2010Q1

REPORT INFORMATION
  Report Type: 
  Country: None (occurrence: None)
  Receive Date: 20100308
  Receipt Date: 20100219
  Transmission Date: 20100710
  Serious: Yes (Hospitalization, Other)
  Sender: FDA-Public Use
  Company Number: 2007-155044-NL

PATIENT
  Age: 25 Year
  Sex: Female
  Weight: 70.3075 kg

DRUGS (7)
  1. NUVARING [Suspect]
     Indication: CONTRACEPTION
     Dosage: VAG
     Route: 067
     Dates: start: 20070216, end: 20071001
  2. NUVARING [Suspect]
     Indication: MENSTRUAL CYCLE MANAGEMENT
     Dosage: VAG
     Route: 067
     Dates: start: 20070216, end: 20071001
  3. NUVARING [Suspect]
     Indication: PREMENSTRUAL SYNDROME
     Dosage: VAG
     Route: 067
     Dates: start: 20070216, end: 20071001
  4. ONE A DAY [Concomitant]
  5. HYDRO DP [Concomitant]
  6. FLUCONAZOLE [Concomitant]
  7. METHYLPREDNISOLONE [Concomitant]

REACTIONS (16)
  - BRONCHITIS [None]
  - COITAL BLEEDING [None]
  - COSTOCHONDRITIS [None]
  - EAR INFECTION [None]
  - FATIGUE [None]
  - GASTROENTERITIS [None]
  - HEART RATE INCREASED [None]
  - HYPOALBUMINAEMIA [None]
  - MENORRHAGIA [None]
  - MIGRAINE [None]
  - POLYCYTHAEMIA VERA [None]
  - PULMONARY EMBOLISM [None]
  - RHINITIS [None]
  - TENSION HEADACHE [None]
  - VAGINAL DISCHARGE [None]
  - VAGINAL HAEMORRHAGE [None]
